FAERS Safety Report 4722470-1 (Version None)
Quarter: 2005Q3

REPORT INFORMATION
  Report Type: 
  Country: None (occurrence: None)
  Receive Date: 20050722
  Receipt Date: 20050503
  Transmission Date: 20060218
  Serious: No
  Sender: FDA-Public Use
  Company Number: US-GLAXOSMITHKLINE-A0557073A

PATIENT
  Age: 63 Year
  Sex: Female

DRUGS (8)
  1. AVANDIA [Suspect]
     Dosage: 2MG PER DAY
     Route: 048
  2. GLYBURIDE [Concomitant]
  3. LEXAPRO [Concomitant]
  4. LITHIUM CARBONATE [Concomitant]
  5. SEROQUEL [Concomitant]
  6. LEVOXYL [Concomitant]
  7. RANITIDINE [Concomitant]
  8. MULTIVITAMIN [Concomitant]

REACTIONS (1)
  - WEIGHT INCREASED [None]
